FAERS Safety Report 23747130 (Version 1)
Quarter: 2024Q2

REPORT INFORMATION
  Report Type: Spontaneous
  Country: US (occurrence: US)
  Receive Date: 20240416
  Receipt Date: 20240416
  Transmission Date: 20240716
  Serious: No
  Sender: FDA-Public Use
  Company Number: US-TEVA-VS-3178118

PATIENT
  Sex: Female

DRUGS (1)
  1. AMPHETAMINE\DEXTROAMPHETAMINE [Suspect]
     Active Substance: AMPHETAMINE\DEXTROAMPHETAMINE
     Indication: Product used for unknown indication
     Dosage: CAPSULES - EXTENDED /SUSTAINED RELEASE
     Route: 065

REACTIONS (4)
  - Fatigue [Unknown]
  - Irritability [Unknown]
  - Confusional state [Unknown]
  - Depression [Unknown]
